FAERS Safety Report 12729653 (Version 2)
Quarter: 2016Q3

REPORT INFORMATION
  Report Type: Spontaneous
  Country: FR (occurrence: FR)
  Receive Date: 20160909
  Receipt Date: 20160920
  Transmission Date: 20161109
  Serious: Yes (Hospitalization, Other)
  Sender: FDA-Public Use
  Company Number: FR-BRISTOL-MYERS SQUIBB COMPANY-BMS-2016-072969

PATIENT
  Age: 48 Year
  Sex: Female

DRUGS (2)
  1. OPDIVO [Suspect]
     Active Substance: NIVOLUMAB
     Indication: MALIGNANT MELANOMA
     Dosage: UNK
     Route: 042
     Dates: start: 20160609
  2. YERVOY [Suspect]
     Active Substance: IPILIMUMAB
     Indication: MALIGNANT MELANOMA
     Dosage: UNK
     Route: 042
     Dates: start: 20160609

REACTIONS (9)
  - Diarrhoea [Recovered/Resolved]
  - Hypocalcaemia [Unknown]
  - Anaemia [Unknown]
  - Hepatocellular injury [Unknown]
  - Cholestasis [Recovering/Resolving]
  - Oedema peripheral [Unknown]
  - Hypokalaemia [Recovered/Resolved]
  - Colitis [Unknown]
  - Packed red blood cell transfusion [Unknown]

NARRATIVE: CASE EVENT DATE: 201606
